FAERS Safety Report 4274768-1 (Version None)
Quarter: 2004Q1

REPORT INFORMATION
  Report Type: 
  Country: None (occurrence: None)
  Receive Date: 20040120
  Receipt Date: 20040120
  Transmission Date: 20041129
  Serious: No
  Sender: FDA-Public Use
  Company Number: None

PATIENT
  Age: 54 Year
  Sex: Female

DRUGS (1)
  1. CISPLATIN [Suspect]
     Dosage: 150 MG IV
     Route: 042
     Dates: start: 20031217

REACTIONS (1)
  - MEDICATION ERROR [None]
